FAERS Safety Report 20953797 (Version 4)
Quarter: 2024Q1

REPORT INFORMATION
  Report Type: Spontaneous
  Country: US (occurrence: US)
  Receive Date: 20220614
  Receipt Date: 20240220
  Transmission Date: 20240409
  Serious: Yes (Other)
  Sender: FDA-Public Use
  Company Number: US-JNJFOC-20220610315

PATIENT
  Age: 49 Year
  Sex: Female

DRUGS (3)
  1. ELMIRON [Suspect]
     Active Substance: PENTOSAN POLYSULFATE SODIUM
     Indication: Cystitis interstitial
     Route: 048
     Dates: start: 20130701, end: 20170627
  2. OESTRIOL + OESTRADIOL [Concomitant]
     Indication: Menopausal symptoms
     Dates: start: 20130724, end: 20180101
  3. BENZPHETAMINE [Concomitant]
     Active Substance: BENZPHETAMINE HYDROCHLORIDE
     Indication: Weight decreased
     Dates: start: 20130701, end: 20210101

REACTIONS (3)
  - Neovascular age-related macular degeneration [Not Recovered/Not Resolved]
  - Maculopathy [Unknown]
  - Drug ineffective [Unknown]

NARRATIVE: CASE EVENT DATE: 20130901
